FAERS Safety Report 4305032-X (Version None)
Quarter: 2004Q1

REPORT INFORMATION
  Report Type: 
  Country: None (occurrence: None)
  Receive Date: 20040224
  Receipt Date: 20040211
  Transmission Date: 20041129
  Serious: Yes (Hospitalization)
  Sender: FDA-Public Use
  Company Number: US-JNJFOC-20040202604

PATIENT
  Age: 65 Year
  Sex: Male
  Weight: 90.7194 kg

DRUGS (12)
  1. REMICADE [Suspect]
     Indication: COLITIS ULCERATIVE
     Dosage: INTRAVENOUS
     Route: 042
     Dates: start: 20031126
  2. PROTONIX [Concomitant]
  3. COLAZAL (BALSALAZIDE SODIUM) [Concomitant]
  4. POTASSIUM (POTASSIUM) [Concomitant]
  5. COREG [Concomitant]
  6. GLUCOVANCE (GLIBOMET) [Concomitant]
  7. LASIX [Concomitant]
  8. IMURAN [Concomitant]
  9. PREDNISONE [Concomitant]
  10. SYNTHROID [Concomitant]
  11. FOLIC ACID [Concomitant]
  12. COUMADIN [Concomitant]

REACTIONS (4)
  - ATRIAL FIBRILLATION [None]
  - DRUG INEFFECTIVE [None]
  - HEART RATE INCREASED [None]
  - RASH MACULAR [None]
